FAERS Safety Report 5134668-1 (Version None)
Quarter: 2006Q4

REPORT INFORMATION
  Report Type: 
  Country: None (occurrence: None)
  Receive Date: 20061025
  Receipt Date: 20061018
  Transmission Date: 20070319
  Serious: Yes (Life-Threatening, Hospitalization)
  Sender: FDA-Public Use
  Company Number: 465451

PATIENT
  Age: 74 Year
  Sex: Male

DRUGS (8)
  1. CARVEDILOL [Suspect]
     Dosage: 2.5MG TWICE PER DAY
     Route: 048
     Dates: start: 20060810
  2. PANALDINE [Suspect]
     Indication: THROMBOSIS PROPHYLAXIS
     Dosage: 100MG TWICE PER DAY
     Route: 048
     Dates: start: 20060725, end: 20060906
  3. LASIX [Suspect]
     Dosage: 20MG TWICE PER DAY
     Route: 048
     Dates: start: 20060806
  4. ASPIRIN [Suspect]
     Dosage: 100MG PER DAY
     Route: 048
  5. RENIVACE [Suspect]
     Dosage: 1.25MG TWICE PER DAY
     Route: 048
     Dates: start: 20060725
  6. LIPITOR [Suspect]
     Dosage: 10MG PER DAY
     Route: 048
     Dates: start: 20060725
  7. LANSOPRAZOLE [Suspect]
     Dosage: 30MG PER DAY
     Route: 048
     Dates: start: 20060725
  8. WARFARIN SODIUM [Suspect]
     Dosage: 1.5MG PER DAY
     Route: 048
     Dates: start: 20060810

REACTIONS (4)
  - LEUKOPENIA [None]
  - NEUTROPENIA [None]
  - PYREXIA [None]
  - THROMBOCYTOPENIA [None]
